FAERS Safety Report 14954908 (Version 5)
Quarter: 2018Q4

REPORT INFORMATION
  Report Type: Report from Study
  Country: GB (occurrence: GB)
  Receive Date: 20180530
  Receipt Date: 20181001
  Transmission Date: 20190204
  Serious: No
  Sender: FDA-Public Use
  Company Number: GB-ALEXION PHARMACEUTICALS INC.-A201806462

PATIENT
  Age: 59 Year
  Sex: Female

DRUGS (8)
  1. SOLIRIS [Suspect]
     Active Substance: ECULIZUMAB
     Dosage: 1200 MG, Q2W
     Route: 065
     Dates: start: 20151204
  2. SOLIRIS [Suspect]
     Active Substance: ECULIZUMAB
     Indication: PAROXYSMAL NOCTURNAL HAEMOGLOBINURIA
     Dosage: 600 MG, QW
     Route: 065
     Dates: start: 20150911, end: 20151002
  3. SOLIRIS [Suspect]
     Active Substance: ECULIZUMAB
     Dosage: 900 MG, Q2W
     Route: 065
     Dates: start: 20151009, end: 20151105
  4. SOLIRIS [Suspect]
     Active Substance: ECULIZUMAB
     Dosage: 900 MG, Q2W
     Route: 065
     Dates: start: 20151009, end: 20151119
  5. SOLIRIS [Suspect]
     Active Substance: ECULIZUMAB
     Dosage: 1200 MG, Q2W
     Route: 065
     Dates: start: 20151203
  6. SOLIRIS [Suspect]
     Active Substance: ECULIZUMAB
     Dosage: 600 MG, QW
     Route: 042
     Dates: start: 20150925, end: 20151002
  7. SOLIRIS [Suspect]
     Active Substance: ECULIZUMAB
     Dosage: 1200 MG, Q2W
     Route: 065
     Dates: start: 20151203
  8. SOLIRIS [Suspect]
     Active Substance: ECULIZUMAB
     Dosage: 1200 MG, Q2W
     Route: 065
     Dates: start: 20151203

REACTIONS (4)
  - Lower respiratory tract infection [Unknown]
  - Fatigue [Not Recovered/Not Resolved]
  - Back pain [Recovered/Resolved]
  - Dyspnoea [Recovered/Resolved]

NARRATIVE: CASE EVENT DATE: 20150614
